FAERS Safety Report 4461698-5 (Version None)
Quarter: 2004Q3

REPORT INFORMATION
  Report Type: 
  Country: None (occurrence: None)
  Receive Date: 20040924
  Receipt Date: 20040924
  Transmission Date: 20050211
  Serious: Yes (Hospitalization)
  Sender: FDA-Public Use
  Company Number: None

PATIENT
  Sex: Female
  Weight: 50.3493 kg

DRUGS (4)
  1. WELLBUTRIN XL [Suspect]
     Indication: DEPRESSION
     Dosage: 150 MG Q AM ORAL
     Route: 048
     Dates: start: 20040731, end: 20040820
  2. PROZAC [Concomitant]
  3. VISTARIL [Concomitant]
  4. DEPAKOTE ER [Concomitant]

REACTIONS (1)
  - CONVULSION [None]
